FAERS Safety Report 15408844 (Version 2)
Quarter: 2018Q4

REPORT INFORMATION
  Report Type: Report from Study
  Country: GE (occurrence: GE)
  Receive Date: 20180920
  Receipt Date: 20181210
  Transmission Date: 20190204
  Serious: Yes (Other)
  Sender: FDA-Public Use
  Company Number: GE-JNJFOC-20180921044

PATIENT
  Age: 63 Year
  Sex: Female
  Weight: 64.6 kg

DRUGS (44)
  1. PRETOMANID [Suspect]
     Active Substance: PRETOMANID
     Indication: PULMONARY TUBERCULOSIS
     Route: 048
     Dates: start: 20180831, end: 20180831
  2. SODIUM CHLORIDE. [Concomitant]
     Active Substance: SODIUM CHLORIDE
     Indication: POISONING
     Route: 042
     Dates: start: 20180817, end: 20180904
  3. ANALGINE [Concomitant]
     Indication: PYREXIA
     Route: 048
     Dates: start: 20180809, end: 20180811
  4. ANALGINE [Concomitant]
     Indication: PYREXIA
     Route: 048
     Dates: start: 20180812, end: 20180813
  5. ANALGINE [Concomitant]
     Indication: PYREXIA
     Route: 048
     Dates: start: 20180815, end: 20180816
  6. RINGERS SOLUTION [Concomitant]
     Active Substance: CALCIUM CHLORIDE\POTASSIUM CHLORIDE\SODIUM CHLORIDE
     Indication: POISONING
     Route: 042
     Dates: start: 20180825, end: 20180826
  7. PRETOMANID [Suspect]
     Active Substance: PRETOMANID
     Indication: PULMONARY TUBERCULOSIS
     Route: 048
     Dates: start: 20180730, end: 20180730
  8. PRETOMANID [Suspect]
     Active Substance: PRETOMANID
     Indication: PULMONARY TUBERCULOSIS
     Route: 048
     Dates: start: 20180801, end: 20180826
  9. PYRAZINAMIDE. [Suspect]
     Active Substance: PYRAZINAMIDE
     Indication: PULMONARY TUBERCULOSIS
     Route: 048
     Dates: start: 20180831, end: 20180831
  10. ANALGINE [Concomitant]
     Indication: PYREXIA
     Route: 048
     Dates: start: 20180808, end: 20180808
  11. ANALGINE [Concomitant]
     Indication: PYREXIA
     Route: 048
     Dates: start: 20180821, end: 20180821
  12. RINGERS SOLUTION [Concomitant]
     Active Substance: CALCIUM CHLORIDE\POTASSIUM CHLORIDE\SODIUM CHLORIDE
     Indication: POISONING
     Route: 042
     Dates: start: 20180819, end: 20180819
  13. REAMBERIN [Concomitant]
     Indication: POISONING
     Route: 042
     Dates: start: 20180818, end: 20180818
  14. ASPARCAM [Concomitant]
     Indication: PROPHYLAXIS
     Route: 048
     Dates: start: 20180817, end: 20180904
  15. SUPRASTIN [Concomitant]
     Active Substance: CHLOROPYRAMINE HYDROCHLORIDE
     Indication: PYREXIA
     Dosage: ONCE
     Route: 030
     Dates: start: 20180826, end: 20180826
  16. SODIUM CHLORIDE. [Concomitant]
     Active Substance: SODIUM CHLORIDE
     Indication: POISONING
     Route: 042
     Dates: start: 20180804, end: 20180804
  17. ANALGINE [Concomitant]
     Indication: PYREXIA
     Route: 048
     Dates: start: 20180820, end: 20180820
  18. BEDAQUILINE [Suspect]
     Active Substance: BEDAQUILINE
     Indication: PULMONARY TUBERCULOSIS
     Route: 048
     Dates: start: 20180831, end: 20180831
  19. MOXIFLOXACIN. [Suspect]
     Active Substance: MOXIFLOXACIN
     Indication: PULMONARY TUBERCULOSIS
     Route: 048
     Dates: start: 20180730, end: 20180730
  20. MOXIFLOXACIN. [Suspect]
     Active Substance: MOXIFLOXACIN
     Indication: PULMONARY TUBERCULOSIS
     Route: 048
     Dates: start: 20180831, end: 20180831
  21. ANALGINE [Concomitant]
     Indication: PYREXIA
     Route: 048
     Dates: start: 20180822, end: 20180822
  22. RINGERS SOLUTION [Concomitant]
     Active Substance: CALCIUM CHLORIDE\POTASSIUM CHLORIDE\SODIUM CHLORIDE
     Indication: POISONING
     Route: 042
     Dates: start: 20180817, end: 20180817
  23. ANALGINE [Concomitant]
     Indication: PYREXIA
     Route: 048
     Dates: start: 20180817, end: 20180817
  24. ANALGINE [Concomitant]
     Indication: PYREXIA
     Route: 048
     Dates: start: 20180818, end: 20180818
  25. RINGERS SOLUTION [Concomitant]
     Active Substance: CALCIUM CHLORIDE\POTASSIUM CHLORIDE\SODIUM CHLORIDE
     Indication: POISONING
     Route: 042
     Dates: start: 20180807, end: 20180807
  26. REAMBERIN [Concomitant]
     Indication: POISONING
     Route: 042
     Dates: start: 20180824, end: 20180824
  27. FUROSEMIDE. [Concomitant]
     Active Substance: FUROSEMIDE
     Indication: RASH MACULO-PAPULAR
     Route: 030
     Dates: start: 20180827, end: 20180829
  28. BEDAQUILINE [Suspect]
     Active Substance: BEDAQUILINE
     Indication: PULMONARY TUBERCULOSIS
     Route: 048
     Dates: start: 20180730, end: 20180730
  29. PYRAZINAMIDE. [Suspect]
     Active Substance: PYRAZINAMIDE
     Indication: PULMONARY TUBERCULOSIS
     Route: 048
     Dates: start: 20180730, end: 20180730
  30. ANALGINE [Concomitant]
     Indication: PYREXIA
     Route: 048
     Dates: start: 20180814, end: 20180814
  31. RINGERS SOLUTION [Concomitant]
     Active Substance: CALCIUM CHLORIDE\POTASSIUM CHLORIDE\SODIUM CHLORIDE
     Indication: POISONING
     Route: 042
     Dates: start: 20180821, end: 20180821
  32. REAMBERIN [Concomitant]
     Indication: POISONING
     Route: 042
     Dates: start: 20180808, end: 20180808
  33. MEROPENEM. [Concomitant]
     Active Substance: MEROPENEM
     Indication: LEUKOCYTOSIS
     Route: 042
     Dates: start: 20180817, end: 20180826
  34. ASPARCAM [Concomitant]
     Indication: PROPHYLAXIS
     Route: 048
     Dates: start: 20180730, end: 20180806
  35. DEXAMETHASONE. [Concomitant]
     Active Substance: DEXAMETHASONE
     Indication: RASH MACULO-PAPULAR
     Route: 030
     Dates: start: 20180827, end: 20180830
  36. SUPRASTIN [Concomitant]
     Active Substance: CHLOROPYRAMINE HYDROCHLORIDE
     Indication: RASH MACULO-PAPULAR
     Dosage: ONCE
     Route: 030
     Dates: start: 20180826, end: 20180826
  37. MOXIFLOXACIN. [Suspect]
     Active Substance: MOXIFLOXACIN
     Indication: PULMONARY TUBERCULOSIS
     Route: 048
     Dates: start: 20180801, end: 20180826
  38. RINGERS SOLUTION [Concomitant]
     Active Substance: CALCIUM CHLORIDE\POTASSIUM CHLORIDE\SODIUM CHLORIDE
     Indication: POISONING
     Route: 042
     Dates: start: 20180823, end: 20180823
  39. REAMBERIN [Concomitant]
     Indication: POISONING
     Route: 042
     Dates: start: 20180822, end: 20180822
  40. BILASTINE [Concomitant]
     Active Substance: BILASTINE
     Indication: RASH
     Route: 048
     Dates: start: 20180827, end: 20180830
  41. BEDAQUILINE [Suspect]
     Active Substance: BEDAQUILINE
     Indication: PULMONARY TUBERCULOSIS
     Route: 048
     Dates: start: 20180801, end: 20180826
  42. PYRAZINAMIDE. [Suspect]
     Active Substance: PYRAZINAMIDE
     Indication: PULMONARY TUBERCULOSIS
     Route: 048
     Dates: start: 20180801, end: 20180826
  43. SODIUM CHLORIDE. [Concomitant]
     Active Substance: SODIUM CHLORIDE
     Indication: POISONING
     Route: 042
     Dates: start: 20180803, end: 20180803
  44. REAMBERIN [Concomitant]
     Indication: POISONING
     Route: 042
     Dates: start: 20180820, end: 20180820

REACTIONS (1)
  - Pyrexia [Recovered/Resolved]

NARRATIVE: CASE EVENT DATE: 20180831
